FAERS Safety Report 14477770 (Version 1)
Quarter: 2018Q1

REPORT INFORMATION
  Report Type: Report from Study
  Country: US (occurrence: US)
  Receive Date: 20180201
  Receipt Date: 20180201
  Transmission Date: 20180509
  Serious: No
  Sender: FDA-Public Use
  Company Number: US-EXELIXIS-CABO-17009376

PATIENT
  Sex: Female

DRUGS (10)
  1. CABOMETYX [Suspect]
     Active Substance: CABOZANTINIB S-MALATE
     Dosage: 40 MG, QD
     Route: 048
     Dates: start: 20170608
  2. CABOMETYX [Suspect]
     Active Substance: CABOZANTINIB S-MALATE
     Indication: RENAL CANCER
     Dosage: 60 MG, QD
     Route: 048
     Dates: start: 201704
  3. IRON [Concomitant]
     Active Substance: IRON
  4. ATENOLOL. [Concomitant]
     Active Substance: ATENOLOL
  5. DONEPEZIL. [Concomitant]
     Active Substance: DONEPEZIL
  6. AMLODIPINE [Concomitant]
     Active Substance: AMLODIPINE BESYLATE
  7. NORCO [Concomitant]
     Active Substance: ACETAMINOPHEN\HYDROCODONE BITARTRATE
  8. ALPRAZOLAM. [Concomitant]
     Active Substance: ALPRAZOLAM
  9. ONE DAILY WOMEN^S [Concomitant]
  10. VITAMIN E [Concomitant]
     Active Substance: .ALPHA.-TOCOPHEROL

REACTIONS (4)
  - Pain in extremity [Unknown]
  - Abnormal faeces [Unknown]
  - Skin exfoliation [Unknown]
  - Palmar-plantar erythrodysaesthesia syndrome [Unknown]
